FAERS Safety Report 7897906-8 (Version None)
Quarter: 2011Q4

REPORT INFORMATION
  Report Type: 
  Country: None (occurrence: None)
  Receive Date: 20111103
  Receipt Date: 20111025
  Transmission Date: 20120403
  Serious: Yes (Other)
  Sender: FDA-Public Use
  Company Number: 2011S1001489

PATIENT
  Sex: Male

DRUGS (3)
  1. NIASPAN [Concomitant]
  2. LIVALO [Suspect]
     Dosage: 1 MG, PO; 2 MG; PO
     Route: 048
  3. CEFTIN [Concomitant]

REACTIONS (1)
  - HEPATITIS [None]
